FAERS Safety Report 8827550 (Version 2)
Quarter: 2013Q4

REPORT INFORMATION
  Report Type: Spontaneous
  Country: US (occurrence: US)
  Receive Date: 20121005
  Receipt Date: 20131226
  Transmission Date: 20140711
  Serious: Yes (Hospitalization, Disabling, Other)
  Sender: FDA-Public Use
  Company Number: US-ASTRAZENECA-2012SE26936

PATIENT
  Age: 64 Year
  Sex: Female
  Weight: 91.6 kg

DRUGS (5)
  1. NEXIUM [Suspect]
     Indication: GASTROOESOPHAGEAL REFLUX DISEASE
     Route: 048
     Dates: start: 2012, end: 20131204
  2. ATACAND HCT [Suspect]
     Indication: BLOOD PRESSURE ABNORMAL
     Dosage: 16-12.5 MG DAILY
     Route: 048
     Dates: start: 1990
  3. LISINOPRIL [Suspect]
     Route: 048
  4. MORPHINE [Suspect]
     Route: 065
  5. MECLIZINE [Concomitant]
     Indication: DIZZINESS
     Route: 048
     Dates: start: 2008

REACTIONS (14)
  - Joint dislocation [Not Recovered/Not Resolved]
  - Cartilage injury [Unknown]
  - Lipoma [Recovering/Resolving]
  - Dizziness [Unknown]
  - Impaired work ability [Unknown]
  - Cardiomegaly [Unknown]
  - Fall [Unknown]
  - Arthralgia [Recovered/Resolved]
  - Arthritis [Unknown]
  - Weight increased [Not Recovered/Not Resolved]
  - Abdominal distension [Unknown]
  - Bronchitis [Unknown]
  - Drug hypersensitivity [Unknown]
  - Drug dose omission [Unknown]
